FAERS Safety Report 5909375-5 (Version None)
Quarter: 2008Q4

REPORT INFORMATION
  Report Type: 
  Country: None (occurrence: None)
  Receive Date: 20081006
  Receipt Date: 20080923
  Transmission Date: 20090506
  Serious: Yes (Congenital Anomaly, Other)
  Sender: FDA-Public Use
  Company Number: GB-B.I. PHARMACEUTICALS,INC./RIDGEFIELD-2008-UK-01394UK

PATIENT

DRUGS (2)
  1. VIRAMUNE [Suspect]
     Indication: HIV INFECTION
     Dosage: 400MG
     Route: 064
     Dates: start: 20060615
  2. KIVEXA [Concomitant]
     Indication: HIV INFECTION
     Route: 064
     Dates: start: 20061018

REACTIONS (2)
  - CONGENITAL ANOMALY [None]
  - FOETAL GROWTH RETARDATION [None]
